FAERS Safety Report 9831600 (Version 1)
Quarter: 2014Q1

REPORT INFORMATION
  Report Type: Spontaneous
  Country: US (occurrence: US)
  Receive Date: 20140121
  Receipt Date: 20140121
  Transmission Date: 20141002
  Serious: No
  Sender: FDA-Public Use
  Company Number: US-PFIZER INC-2014016625

PATIENT
  Age: 76 Year
  Sex: Male
  Weight: 82.54 kg

DRUGS (5)
  1. LYRICA [Suspect]
     Dosage: 100 MG, 2X/DAY
     Route: 048
     Dates: start: 201310, end: 20131228
  2. TRAMADOL [Concomitant]
     Dosage: UNK
  3. BABY ASPIRIN [Concomitant]
     Dosage: UNK, 1X/DAY
  4. FISH OIL [Concomitant]
     Dosage: UNK
  5. VITAMIN D3 1000 [Concomitant]
     Dosage: UNK

REACTIONS (7)
  - Blood glucose increased [Unknown]
  - Blood cholesterol increased [Unknown]
  - Pain [Not Recovered/Not Resolved]
  - Tremor [Not Recovered/Not Resolved]
  - Burning sensation [Not Recovered/Not Resolved]
  - Peripheral coldness [Not Recovered/Not Resolved]
  - Hypoaesthesia [Not Recovered/Not Resolved]
